FAERS Safety Report 8361176-7 (Version None)
Quarter: 2012Q1

REPORT INFORMATION
  Report Type: 
  Country: None (occurrence: None)
  Receive Date: 20120323
  Receipt Date: 20110425
  Transmission Date: 20120608
  Serious: Yes (Other)
  Sender: FDA-Public Use
  Company Number: 163-21880-11033604

PATIENT
  Age: 69 Year
  Sex: Male

DRUGS (22)
  1. MEDROL [Concomitant]
  2. TRAMADOL(TRAMADOL)(TABLETS) [Concomitant]
  3. AMBIEN CR (ZOLPIDEM TARTRATE)(UNKNOWN) [Concomitant]
  4. MULTIVITAMINS (MULTIVITAMINS) (TABLETS) [Concomitant]
  5. ACTIGALL(URSODEOXYCHOLIC ACID)(TABLETS) [Concomitant]
  6. COQ10 (UBIDECARENONE)(TABLETS) [Concomitant]
  7. FOLIC ACID (FOLIC ACID)(TABLETS) [Concomitant]
  8. THYROID TAB [Concomitant]
  9. DIFLUCAN [Concomitant]
  10. SENOKOT S(COLOXYL WITH SENNA)(UNKNOWN) [Concomitant]
  11. CALCIUM PLUS D(CALCIUM D3 ^STADA^)(TABLETS) [Concomitant]
  12. VITAMIN C(ASCORBIC ACID)(TABLETS) [Concomitant]
  13. ANDROGEL(TESTOSTERONE)(UNKNOWN) [Concomitant]
  14. VITAMIN B COMPLEX(B-KOMPLEX ^LECIVA^)(UNKNOWN) [Concomitant]
  15. MAGNESIUM OXIDE(MAGNESIUM OXIDE)(TABLETS) [Concomitant]
  16. PENTAMIDINE (PENTAMIDINE)(INJECTION FOR INFUSION) [Concomitant]
  17. TOPROL XL(METOPROLOL SUCCINATE)(TABLETS) [Concomitant]
  18. LEVAQUIN [Concomitant]
  19. VALTREX(VALACICLOVIR HYDROCHLORIDE)(TABLETS) [Concomitant]
  20. REVLIMID [Suspect]
     Indication: CHRONIC LYMPHOCYTIC LEUKAEMIA
     Dosage: 10 MG, 1 IN 1 D, PO
     Route: 048
     Dates: start: 20110228, end: 20110101
  21. ZOFRAN [Concomitant]
  22. VITAMIN D(ERGOCALCIFEROL)(TABLETS) [Concomitant]

REACTIONS (3)
  - HEPATIC ENZYME INCREASED [None]
  - DYSPHONIA [None]
  - LYMPHADENOPATHY [None]
